FAERS Safety Report 6433629-X (Version None)
Quarter: 2009Q4

REPORT INFORMATION
  Report Type: 
  Country: None (occurrence: None)
  Receive Date: 20091110
  Receipt Date: 20091102
  Transmission Date: 20100525
  Serious: Yes (Other)
  Sender: FDA-Public Use
  Company Number: US-BAYER-200938386NA

PATIENT
  Age: 26 Year
  Sex: Female

DRUGS (1)
  1. AVELOX [Suspect]
     Indication: SINUSITIS
     Dosage: UNIT DOSE: 400 MG
     Dates: start: 20090819

REACTIONS (4)
  - HYPERSENSITIVITY [None]
  - HYPERVENTILATION [None]
  - RASH GENERALISED [None]
  - THROAT TIGHTNESS [None]
